FAERS Safety Report 14976902 (Version 1)
Quarter: 2018Q2

REPORT INFORMATION
  Report Type: Spontaneous
  Country: FR (occurrence: FR)
  Receive Date: 20180605
  Receipt Date: 20180605
  Transmission Date: 20180711
  Serious: Yes (Other)
  Sender: FDA-Public Use
  Company Number: FR-TEVA-2018-FR-900462

PATIENT
  Age: 30 Year
  Sex: Female

DRUGS (4)
  1. EFFEDERM, SOLUTION POUR APPLICATION CUTAN?E [Suspect]
     Active Substance: TRETINOIN
     Indication: ACNE
     Dosage: 1 DOSAGE FORMS DAILY;
     Route: 061
     Dates: start: 201611, end: 201702
  2. DOXYCYCLINE. [Suspect]
     Active Substance: DOXYCYCLINE
     Indication: ACNE
     Route: 048
     Dates: start: 201611, end: 201702
  3. JASMINELLE [Suspect]
     Active Substance: DROSPIRENONE
     Dosage: 1 DOSAGE FORMS DAILY;
     Route: 048
     Dates: end: 201702
  4. DOXYCYCLINE. [Suspect]
     Active Substance: DOXYCYCLINE
     Indication: CHEMICAL CONTRACEPTION
     Dosage: 1 DOSAGE FORMS DAILY;
     Route: 048
     Dates: end: 201702

REACTIONS (2)
  - Abortion spontaneous [Recovered/Resolved with Sequelae]
  - Pregnancy [None]

NARRATIVE: CASE EVENT DATE: 20170226
